FAERS Safety Report 18970506 (Version 1)
Quarter: 2021Q1

REPORT INFORMATION
  Report Type: Spontaneous
  Country: US (occurrence: US)
  Receive Date: 20210305
  Receipt Date: 20210305
  Transmission Date: 20210420
  Serious: Yes (Hospitalization, Disabling)
  Sender: FDA-Public Use
  Company Number: US-TEVA-2021-US-1885266

PATIENT
  Age: 51 Year
  Sex: Female

DRUGS (2)
  1. FLUDARABINE [Suspect]
     Active Substance: FLUDARABINE PHOSPHATE
     Indication: BONE MARROW CONDITIONING REGIMEN
     Route: 065
  2. MELPHALAN. [Suspect]
     Active Substance: MELPHALAN
     Indication: BONE MARROW CONDITIONING REGIMEN
     Route: 065

REACTIONS (4)
  - Stress fracture [Recovering/Resolving]
  - Osteonecrosis [Recovering/Resolving]
  - Acetabulum fracture [Recovering/Resolving]
  - Arthropathy [Recovering/Resolving]
